FAERS Safety Report 5034328-1 (Version None)
Quarter: 2006Q2

REPORT INFORMATION
  Report Type: 
  Country: None (occurrence: None)
  Receive Date: 20060626
  Receipt Date: 20060614
  Transmission Date: 20061013
  Serious: Yes (Death, Hospitalization, Other)
  Sender: FDA-Public Use
  Company Number: PHEH2006US07778

PATIENT
  Age: 70 Year
  Sex: Female

DRUGS (10)
  1. FUROSEMIDE [Concomitant]
     Dosage: 20MG QD
  2. ISOSORBIDE [Concomitant]
     Dosage: 30MG QD
  3. ZOCOR [Concomitant]
     Dosage: 20MG QD
  4. TOPROL-XL [Concomitant]
     Dosage: 100MG QD
  5. PLAVIX [Concomitant]
     Dosage: 75MG QD
  6. ACTONEL [Concomitant]
     Dosage: 35MG UNK
  7. ASPIRIN [Concomitant]
     Dosage: 81MG QD
  8. PROTONIX [Concomitant]
     Dosage: 40MG QD
  9. THALIDOMID [Suspect]
     Indication: MULTIPLE MYELOMA
     Dosage: 50-150 MG, QD
     Route: 048
     Dates: start: 20031013, end: 20040826
  10. ZOMETA [Suspect]
     Indication: MULTIPLE MYELOMA
     Dosage: 4 MG MONTHLY
     Dates: start: 20031013, end: 20040429

REACTIONS (5)
  - BLOOD CREATININE INCREASED [None]
  - KYPHOSIS [None]
  - MALIGNANT NEOPLASM PROGRESSION [None]
  - RENAL FAILURE [None]
  - RESPIRATORY FAILURE [None]
